FAERS Safety Report 13523815 (Version 1)
Quarter: 2017Q2

REPORT INFORMATION
  Report Type: Spontaneous
  Country: US (occurrence: US)
  Receive Date: 20170508
  Receipt Date: 20170508
  Transmission Date: 20170830
  Serious: No
  Sender: FDA-Public Use
  Company Number: US-VIFOR (INTERNATIONAL) INC.-VIT-2017-04212

PATIENT
  Sex: Female

DRUGS (20)
  1. ARANESP [Concomitant]
     Active Substance: DARBEPOETIN ALFA
  2. AMLOD/BENAZE [Concomitant]
  3. CALCIUM [Concomitant]
     Active Substance: CALCIUM
  4. HUMULIN R [Concomitant]
     Active Substance: INSULIN HUMAN
  5. SERTRALINE [Concomitant]
     Active Substance: SERTRALINE HYDROCHLORIDE
  6. AZITHROMYCIN ANHYDROUS. [Concomitant]
     Active Substance: AZITHROMYCIN ANHYDROUS
  7. LEVEMIR [Concomitant]
     Active Substance: INSULIN DETEMIR
  8. MONTELUKAST [Concomitant]
     Active Substance: MONTELUKAST SODIUM
  9. IPRATROPIUM [Concomitant]
     Active Substance: IPRATROPIUM
  10. LEVOTHYROXINE. [Concomitant]
     Active Substance: LEVOTHYROXINE
  11. PARICALCITOL. [Concomitant]
     Active Substance: PARICALCITOL
  12. ALLOPURINOL. [Concomitant]
     Active Substance: ALLOPURINOL
  13. FERRIC GLUCONATE TRIHYDRATE [Concomitant]
  14. VELTASSA [Suspect]
     Active Substance: PATIROMER
     Indication: HYPERKALAEMIA
     Route: 048
     Dates: start: 20161123
  15. GABAPENTIN. [Concomitant]
     Active Substance: GABAPENTIN
  16. ALENDRONATE SODIUM. [Concomitant]
     Active Substance: ALENDRONATE SODIUM
  17. GEMFIBROZIL. [Concomitant]
     Active Substance: GEMFIBROZIL
  18. OMEPRAZOLE. [Concomitant]
     Active Substance: OMEPRAZOLE
  19. BUMETANIDE. [Concomitant]
     Active Substance: BUMETANIDE
  20. CALCITRIOL. [Concomitant]
     Active Substance: CALCITRIOL

REACTIONS (1)
  - Constipation [Not Recovered/Not Resolved]

NARRATIVE: CASE EVENT DATE: 2017
